FAERS Safety Report 15398567 (Version 2)
Quarter: 2018Q4

REPORT INFORMATION
  Report Type: Spontaneous
  Country: US (occurrence: US)
  Receive Date: 20180918
  Receipt Date: 20181217
  Transmission Date: 20190204
  Serious: No
  Sender: FDA-Public Use
  Company Number: PHEH2018US038533

PATIENT
  Sex: Male

DRUGS (3)
  1. LENVATINIB [Suspect]
     Active Substance: LENVATINIB
     Indication: RENAL CANCER
     Dosage: 18 MG, QD
     Route: 048
  2. LENVATINIB [Suspect]
     Active Substance: LENVATINIB
     Dosage: UNK
     Route: 065
  3. AFINITOR [Suspect]
     Active Substance: EVEROLIMUS
     Indication: RENAL CANCER
     Dosage: 5 MG, QD
     Route: 048

REACTIONS (3)
  - Blood sodium decreased [Unknown]
  - Anxiety disorder [Unknown]
  - Fatigue [Unknown]
